FAERS Safety Report 23500687 (Version 1)
Quarter: 2024Q1

REPORT INFORMATION
  Report Type: Spontaneous
  Country: US (occurrence: US)
  Receive Date: 20240208
  Receipt Date: 20240208
  Transmission Date: 20240409
  Serious: No
  Sender: FDA-Public Use
  Company Number: US-VERICEL-US-VCEL-23-000384

PATIENT
  Age: 46 Year
  Sex: Female

DRUGS (1)
  1. MACI [Suspect]
     Active Substance: AUTOLOGOUS CULTURED CHONDROCYTES\SUS SCROFA COLLAGEN
     Indication: Knee operation
     Dosage: UNK
     Route: 050
     Dates: start: 20231212, end: 20231212

REACTIONS (1)
  - Product container issue [Recovered/Resolved]

NARRATIVE: CASE EVENT DATE: 20231212
